FAERS Safety Report 6131855-0 (Version None)
Quarter: 2009Q1

REPORT INFORMATION
  Report Type: 
  Country: None (occurrence: None)
  Receive Date: 20090325
  Receipt Date: 20090313
  Transmission Date: 20090719
  Serious: Yes (Hospitalization, Other)
  Sender: FDA-Public Use
  Company Number: US-BAYER-200915402NA

PATIENT
  Age: 51 Year
  Sex: Female
  Weight: 69 kg

DRUGS (18)
  1. DACARBAZINE [Suspect]
     Indication: METASTATIC MALIGNANT MELANOMA
     Route: 042
     Dates: start: 20080923, end: 20080923
  2. DACARBAZINE [Suspect]
     Dosage: TOTAL DAILY DOSE: 1320 MG
     Route: 042
     Dates: start: 20081104, end: 20081104
  3. IMC-1121B (ANTI-VEGFR2 MAB) [Suspect]
     Indication: METASTATIC MALIGNANT MELANOMA
     Route: 042
     Dates: start: 20080923, end: 20081104
  4. ALTACE [Concomitant]
     Indication: HYPERTENSION
     Dosage: TOTAL DAILY DOSE: 2.5 MG
     Route: 048
  5. CRESTOR [Concomitant]
     Indication: DRUG USE FOR UNKNOWN INDICATION
     Dosage: TOTAL DAILY DOSE: 10 MG
     Route: 048
  6. NEXIUM [Concomitant]
     Indication: GASTROOESOPHAGEAL REFLUX DISEASE
     Dosage: TOTAL DAILY DOSE: 40 MG
  7. OXYCODONE HCL [Concomitant]
     Indication: PAIN
     Dosage: 5 OR 10MG
  8. SOMA [Concomitant]
     Indication: PAIN
     Dosage: TOTAL DAILY DOSE: 1400 MG
  9. COMPAZINE [Concomitant]
     Indication: NAUSEA
     Dosage: AS REQUIRED
  10. CLARITIN [Concomitant]
     Indication: DRUG USE FOR UNKNOWN INDICATION
  11. ASCORBIC ACID [Concomitant]
     Indication: DRUG USE FOR UNKNOWN INDICATION
  12. VALIUM [Concomitant]
     Indication: DRUG USE FOR UNKNOWN INDICATION
     Dosage: TOTAL DAILY DOSE: 10 MG
  13. FAMOTIDINE [Concomitant]
     Indication: PROPHYLACTIC CHEMOTHERAPY
     Dosage: GIVEN 30 MINUTES PRIOR TO CHEMO INFUSION
     Route: 042
     Dates: end: 20081104
  14. DIPHENHYDRAMINE [Concomitant]
     Indication: PROPHYLACTIC CHEMOTHERAPY
     Dosage: GIVEN 30 MINUTES PRIOR TO CHEMO INFUSION
     Route: 042
     Dates: end: 20081104
  15. DEXAMETHASONE TAB [Concomitant]
     Indication: PROPHYLACTIC CHEMOTHERAPY
     Dosage: GIVEN 30 MINUTES PRIOR TO CHEMO INFUSION
     Route: 042
     Dates: end: 20081104
  16. PALONOSETRON [Concomitant]
     Indication: PROPHYLACTIC CHEMOTHERAPY
     Dosage: GIVEN 30 MINUTES PRIOR TO CHEMO INFUSION
     Route: 042
     Dates: end: 20081104
  17. CALCIUM CARBONATE [Concomitant]
     Indication: DRUG USE FOR UNKNOWN INDICATION
     Dosage: TOTAL DAILY DOSE: 1000 MG
     Route: 048
  18. ASPIRIN [Concomitant]
     Indication: DRUG USE FOR UNKNOWN INDICATION
     Dosage: TOTAL DAILY DOSE: 81 MG
     Route: 048

REACTIONS (1)
  - CHEST PAIN [None]
